FAERS Safety Report 6912376-1 (Version None)
Quarter: 2010Q3

REPORT INFORMATION
  Report Type: 
  Country: None (occurrence: None)
  Receive Date: 20100806
  Receipt Date: 20080414
  Transmission Date: 20110219
  Serious: No
  Sender: FDA-Public Use
  Company Number: US-PFIZER INC-2008029931

PATIENT
  Sex: Female

DRUGS (4)
  1. DETROL LA [Suspect]
     Indication: INCONTINENCE
     Route: 048
  2. VERAPAMIL [Concomitant]
  3. LIPITOR [Concomitant]
  4. NAPROXEN [Concomitant]

REACTIONS (1)
  - PRODUCT QUALITY ISSUE [None]
